FAERS Safety Report 12154929 (Version 1)
Quarter: 2016Q1

REPORT INFORMATION
  Report Type: Spontaneous
  Country: US (occurrence: US)
  Receive Date: 20160307
  Receipt Date: 20160307
  Transmission Date: 20160526
  Serious: No
  Sender: FDA-Public Use
  Company Number: US-WATSON-2015-26615

PATIENT
  Sex: Female
  Weight: 67.59 kg

DRUGS (1)
  1. GLIPIZIDE (WATSON LABORATORIES) [Suspect]
     Active Substance: GLIPIZIDE
     Indication: BLOOD GLUCOSE ABNORMAL
     Dosage: HALF OF A 5 MG TABLET DAILY BY MOUTH
     Route: 048

REACTIONS (1)
  - Blood glucose decreased [Recovered/Resolved]
